FAERS Safety Report 13262487 (Version 1)
Quarter: 2017Q1

REPORT INFORMATION
  Report Type: Spontaneous
  Country: GB (occurrence: GB)
  Receive Date: 20170223
  Receipt Date: 20170223
  Transmission Date: 20170428
  Serious: Yes (Other)
  Sender: FDA-Public Use
  Company Number: GB-009507513-1702GBR009337

PATIENT
  Age: 47 Year
  Sex: Male
  Weight: 100 kg

DRUGS (2)
  1. ZEPATIER [Suspect]
     Active Substance: ELBASVIR\GRAZOPREVIR
     Indication: HEPATITIS C ANTIBODY POSITIVE
     Dosage: 1 DF, QD
     Route: 048
     Dates: start: 20161210
  2. REBETOL [Suspect]
     Active Substance: RIBAVIRIN
     Indication: HEPATITIS C ANTIBODY POSITIVE
     Dosage: 600 MG, BID
     Route: 048
     Dates: start: 20161210

REACTIONS (1)
  - Blood triglycerides increased [Not Recovered/Not Resolved]

NARRATIVE: CASE EVENT DATE: 20170106
